FAERS Safety Report 6967406-8 (Version None)
Quarter: 2010Q3

REPORT INFORMATION
  Report Type: 
  Country: None (occurrence: None)
  Receive Date: 20100907
  Receipt Date: 20100827
  Transmission Date: 20110219
  Serious: Yes (Death, Hospitalization, Other)
  Sender: FDA-Public Use
  Company Number: PHHY2010FR58012

PATIENT
  Sex: Male

DRUGS (9)
  1. EXELON [Interacting]
     Dosage: 6 MG, QD
     Route: 048
     Dates: start: 20091109
  2. ATACAND [Interacting]
     Dosage: 16 MG, QD
     Dates: start: 20091109
  3. BISOPROLOL FUMARATE [Interacting]
     Dosage: 5 MG, QD
     Dates: start: 20091109
  4. TAHOR [Interacting]
     Dosage: 10 MG, QD
     Dates: start: 20091109
  5. MEMANTINE HCL [Suspect]
     Dosage: 5 MG, QD
     Dates: start: 20091101, end: 20091115
  6. MEMANTINE HCL [Suspect]
     Dosage: 10 MG, QD
     Dates: start: 20091116, end: 20091126
  7. IMOVANE [Concomitant]
     Dosage: 15 MG, QD
     Dates: start: 20091109
  8. LASIX [Concomitant]
     Dosage: 40 MG, QD
     Dates: start: 20091109
  9. SERESTA [Interacting]
     Dosage: 10 MG, QD
     Dates: start: 20091109

REACTIONS (7)
  - BLOOD CREATINE PHOSPHOKINASE INCREASED [None]
  - DEATH [None]
  - DRUG INTERACTION [None]
  - DYSSTASIA [None]
  - FALL [None]
  - GENERAL PHYSICAL HEALTH DETERIORATION [None]
  - MYALGIA [None]
